FAERS Safety Report 18139568 (Version 8)
Quarter: 2023Q4

REPORT INFORMATION
  Report Type: Spontaneous
  Country: US (occurrence: US)
  Receive Date: 20200812
  Receipt Date: 20231204
  Transmission Date: 20240110
  Serious: Yes (Other)
  Sender: FDA-Public Use
  Company Number: US-PFIZER INC-2020304009

PATIENT
  Age: 60 Year
  Sex: Female

DRUGS (5)
  1. XELJANZ XR [Suspect]
     Active Substance: TOFACITINIB CITRATE
     Indication: Psoriatic arthropathy
     Dosage: 11 MG, DAILY (1 PO (ORAL) DAILY)
     Route: 048
     Dates: start: 20220307
  2. XELJANZ XR [Suspect]
     Active Substance: TOFACITINIB CITRATE
     Dosage: 11 MG, DAILY (1 PO (ORAL) DAILY)
     Route: 048
     Dates: start: 20220321
  3. XELJANZ XR [Suspect]
     Active Substance: TOFACITINIB CITRATE
     Dosage: 11 MG, DAILY (1 PO (ORAL) DAILY)
     Route: 048
     Dates: start: 20220404
  4. XELJANZ XR [Suspect]
     Active Substance: TOFACITINIB CITRATE
     Dosage: 11 MG, DAILY (1 PO (ORAL) DAILY)
     Route: 048
     Dates: start: 20220613
  5. XELJANZ XR [Suspect]
     Active Substance: TOFACITINIB CITRATE
     Dosage: 11 MG, DAILY (1 PO (ORAL) DAILY)
     Route: 048
     Dates: start: 20220711

REACTIONS (8)
  - Artificial crown procedure [Not Recovered/Not Resolved]
  - Therapeutic product effect incomplete [Unknown]
  - Paraesthesia [Unknown]
  - Pain [Unknown]
  - Blood cholesterol abnormal [Unknown]
  - Hypertension [Unknown]
  - Illness [Unknown]
  - Vitamin D deficiency [Unknown]

NARRATIVE: CASE EVENT DATE: 20230701
